FAERS Safety Report 6020212-3 (Version None)
Quarter: 2008Q4

REPORT INFORMATION
  Report Type: 
  Country: None (occurrence: None)
  Receive Date: 20081223
  Receipt Date: 20081223
  Transmission Date: 20090506
  Serious: Yes (Death)
  Sender: FDA-Public Use
  Company Number: None

PATIENT
  Age: 33 Year
  Sex: Female
  Weight: 70.3075 kg

DRUGS (2)
  1. PROVERA [Suspect]
     Indication: MENSTRUAL DISORDER
     Dosage: ONCE -30 DAY CYCLE- DAILY PO
     Route: 048
     Dates: start: 19960524, end: 20041212
  2. PROVERA [Suspect]
     Indication: POLYCYSTIC OVARIES
     Dosage: ONCE -30 DAY CYCLE- DAILY PO
     Route: 048
     Dates: start: 19960524, end: 20041212

REACTIONS (1)
  - PULMONARY EMBOLISM [None]
